FAERS Safety Report 18371748 (Version 2)
Quarter: 2020Q4

REPORT INFORMATION
  Report Type: Spontaneous
  Country: JP (occurrence: JP)
  Receive Date: 20201012
  Receipt Date: 20201019
  Transmission Date: 20210114
  Serious: Yes (Other)
  Sender: FDA-Public Use
  Company Number: JP-SA-2020SA274954

PATIENT

DRUGS (4)
  1. NEDAPLATIN [Suspect]
     Active Substance: NEDAPLATIN
     Dosage: 80 MG/M2 (INFUSED AT A RATE OF 1.5 ML/MIN)
     Route: 013
  2. DOCETAXEL. [Suspect]
     Active Substance: DOCETAXEL
     Indication: NASAL SINUS CANCER
     Dosage: 60 MG/M2 (INFUSED AT A RATE OF 3.0 ML/MIN)
     Route: 013
  3. DOCETAXEL. [Suspect]
     Active Substance: DOCETAXEL
     Dosage: 60 MG/M2 (INFUSED AT A RATE OF 1.5 ML/MIN), INFUSION
     Route: 013
  4. NEDAPLATIN [Suspect]
     Active Substance: NEDAPLATIN
     Indication: NASAL SINUS CANCER
     Dosage: 80 MG/M2 (INFUSED AT A RATE OF 3.0 ML/MIN)
     Route: 013

REACTIONS (3)
  - Headache [Recovered/Resolved]
  - Cerebral haemorrhage [Recovered/Resolved]
  - Cerebral haematoma [Recovered/Resolved]
